FAERS Safety Report 7019970-0 (Version None)
Quarter: 2010Q3

REPORT INFORMATION
  Report Type: 
  Country: None (occurrence: None)
  Receive Date: 20100929
  Receipt Date: 20100921
  Transmission Date: 20110219
  Serious: Yes (Hospitalization)
  Sender: FDA-Public Use
  Company Number: US-JNJFOC-20100907272

PATIENT
  Age: 6 Year
  Sex: Male

DRUGS (2)
  1. CHILDREN'S MOTRIN [Suspect]
     Indication: VIRAL INFECTION
     Dosage: GIVEN AT REGULAR INTERVALS
     Route: 048
  2. CHILDREN'S MOTRIN [Suspect]
     Indication: PYREXIA
     Dosage: GIVEN AT REGULAR INTERVALS
     Route: 048

REACTIONS (6)
  - DEHYDRATION [None]
  - GASTROINTESTINAL INFLAMMATION [None]
  - HYPERSOMNIA [None]
  - PRODUCT QUALITY ISSUE [None]
  - PYREXIA [None]
  - URTICARIA [None]
